FAERS Safety Report 6665403-3 (Version None)
Quarter: 2010Q2

REPORT INFORMATION
  Report Type: 
  Country: None (occurrence: None)
  Receive Date: 20100402
  Receipt Date: 20100322
  Transmission Date: 20101027
  Serious: Yes (Hospitalization)
  Sender: FDA-Public Use
  Company Number: AU-PFIZER INC-2010036595

PATIENT
  Sex: Female

DRUGS (1)
  1. SYNAREL [Suspect]
     Indication: IN VITRO FERTILISATION
     Dosage: UNK
     Dates: start: 20100101

REACTIONS (3)
  - ATAXIA [None]
  - GAIT DISTURBANCE [None]
  - SPEECH DISORDER [None]
